FAERS Safety Report 17163223 (Version 1)
Quarter: 2019Q4

REPORT INFORMATION
  Report Type: Report from Study
  Country: IT (occurrence: IT)
  Receive Date: 20191217
  Receipt Date: 20191217
  Transmission Date: 20200122
  Serious: Yes (Other)
  Sender: FDA-Public Use
  Company Number: IT-ACCORD-165751

PATIENT
  Age: 63 Year
  Sex: Male

DRUGS (10)
  1. VALIUM [Concomitant]
     Active Substance: DIAZEPAM
     Dosage: STRENGTH 5 MG / ML
  2. LUXAZONE [Concomitant]
     Active Substance: DEXAMETHASONE
  3. AMLODIPINE [Suspect]
     Active Substance: AMLODIPINE BESYLATE
     Indication: HYPERTENSION
     Dosage: LAST ADMINISTRATION: 27-AUG-2019
     Route: 048
     Dates: start: 20180827
  4. CARDURA [Suspect]
     Active Substance: DOXAZOSIN MESYLATE
     Indication: HYPERTENSION
     Dosage: LAST ADMINISTRATION: 27-AUG-2019
     Route: 048
     Dates: start: 20180827
  5. RAMIPRIL. [Suspect]
     Active Substance: RAMIPRIL
     Indication: HYPERTENSION
     Dosage: LAST ADMINISTRATION: 27-AUG-2019
     Route: 048
     Dates: start: 20180827
  6. PARACETAMOL [Concomitant]
     Active Substance: ACETAMINOPHEN
  7. CATAPRESAN TTS [Suspect]
     Active Substance: CLONIDINE
     Indication: HYPERTENSION
     Dosage: LAST ADMINISTRATION: 27-AUG-2019
     Route: 062
     Dates: start: 20180827
  8. METFORMIN [Concomitant]
     Active Substance: METFORMIN HYDROCHLORIDE
  9. GLICLAZIDE [Concomitant]
     Active Substance: GLICLAZIDE
  10. CARDIOASPIRIN [Concomitant]
     Active Substance: ASPIRIN
     Dosage: STRENGTH 100 MG

REACTIONS (3)
  - Headache [Recovering/Resolving]
  - Hypertensive crisis [Recovering/Resolving]
  - Drug ineffective [Unknown]

NARRATIVE: CASE EVENT DATE: 20190827
